FAERS Safety Report 14699983 (Version 1)
Quarter: 2018Q1

REPORT INFORMATION
  Report Type: Spontaneous
  Country: US (occurrence: US)
  Receive Date: 20180329
  Receipt Date: 20180329
  Transmission Date: 20180509
  Serious: Yes (Other)
  Sender: FDA-Public Use
  Company Number: None

PATIENT
  Age: 57 Year
  Sex: Female
  Weight: 51.75 kg

DRUGS (9)
  1. CIPROFLOXACIN ER 500 MG TABLET [Suspect]
     Active Substance: CIPROFLOXACIN
     Indication: PNEUMONIA
     Dosage: ?          QUANTITY:1 TABLET(S);?
     Route: 048
  2. LEXAPRO [Concomitant]
     Active Substance: ESCITALOPRAM OXALATE
  3. PROBIOTIC [Concomitant]
     Active Substance: PROBIOTICS NOS
  4. CLONOPIN [Concomitant]
     Active Substance: CLONAZEPAM
  5. BUPLERUM AND TANG KUEI [Concomitant]
  6. PLAQUENIL [Concomitant]
     Active Substance: HYDROXYCHLOROQUINE SULFATE
  7. VITAMIN D [Concomitant]
     Active Substance: CHOLECALCIFEROL
  8. TANG KUEI AND PEONY FORMULA [Concomitant]
  9. REHEMANNIA SIX FORMULA [Concomitant]

REACTIONS (9)
  - Restlessness [None]
  - Anxiety [None]
  - Hyperhidrosis [None]
  - Vomiting [None]
  - Feeding disorder [None]
  - Crying [None]
  - Disturbance in attention [None]
  - Fatigue [None]
  - Diarrhoea [None]

NARRATIVE: CASE EVENT DATE: 20180328
